FAERS Safety Report 8924535 (Version 1)
Quarter: 2012Q4

REPORT INFORMATION
  Report Type: 
  Country: GB (occurrence: GB)
  Receive Date: 20121126
  Receipt Date: 20121126
  Transmission Date: 20130627
  Serious: Yes (Disabling)
  Sender: FDA-Public Use
  Company Number: GB-MYLANLABS-2012S1023408

PATIENT
  Age: 48 Year
  Sex: Male

DRUGS (10)
  1. ALENDRONIC ACID [Suspect]
     Indication: OSTEOPOROSIS PROPHYLAXIS
     Route: 048
     Dates: start: 20120528
  2. AZATHIOPRINE [Suspect]
     Indication: PEMPHIGUS
     Route: 048
     Dates: start: 20120607
  3. LANSOPRAZOLE [Suspect]
     Indication: PROPHYLAXIS AGAINST GASTROINTESTINAL ULCER
     Route: 048
     Dates: start: 20120528
  4. ADCAL-D3 [Suspect]
     Indication: OSTEOPOROSIS PROPHYLAXIS
     Route: 048
     Dates: start: 20120414
  5. PREDNISOLONE [Suspect]
     Indication: PEMPHIGUS
     Route: 048
     Dates: start: 20120518
  6. PREDNISOLONE [Suspect]
     Indication: PEMPHIGUS
     Route: 048
  7. BETNOVATE-C [Concomitant]
     Indication: PRODUCT USED FOR UNKNOWN INDICATION
     Route: 061
     Dates: start: 20120711
  8. CORSODYL [Concomitant]
     Indication: PEMPHIGUS
     Dosage: STRENGTH - 0.2%
     Route: 048
     Dates: start: 20120518, end: 20120601
  9. DERMOL /07245501/ [Concomitant]
     Indication: PRODUCT USED FOR UNKNOWN INDICATION
     Route: 061
     Dates: start: 20120614
  10. DERMOVATE [Concomitant]
     Indication: PRODUCT USED FOR UNKNOWN INDICATION
     Dosage: STRENGTH - 0.05%
     Route: 061
     Dates: start: 20120711

REACTIONS (3)
  - Trismus [Unknown]
  - Temporomandibular joint syndrome [Unknown]
  - Tremor [Unknown]
